FAERS Safety Report 8602885-1 (Version None)
Quarter: 2012Q3

REPORT INFORMATION
  Report Type: 
  Country: None (occurrence: None)
  Receive Date: 20120817
  Receipt Date: 20120808
  Transmission Date: 20120928
  Serious: Yes (Other)
  Sender: FDA-Public Use
  Company Number: BR-GLAXOSMITHKLINE-A0989903A

PATIENT
  Sex: Male
  Weight: 21 kg

DRUGS (2)
  1. FLUTICASONE FUROATE [Suspect]
     Indication: SINUSITIS
     Route: 045
     Dates: start: 20120802
  2. ALLERGEN EXTRACT [Suspect]
     Indication: PRODUCT USED FOR UNKNOWN INDICATION
     Dates: start: 20120802, end: 20120802

REACTIONS (3)
  - SALIVA ALTERED [None]
  - RESPIRATORY DISTRESS [None]
  - SNORING [None]
